FAERS Safety Report 21669954 (Version 1)
Quarter: 2022Q4

REPORT INFORMATION
  Report Type: Spontaneous
  Country: US (occurrence: US)
  Receive Date: 20221201
  Receipt Date: 20221201
  Transmission Date: 20230113
  Serious: Yes (Hospitalization)
  Sender: FDA-Public Use
  Company Number: US-MYLANLABS-2022M1134883

PATIENT
  Age: 5 Decade
  Sex: Male

DRUGS (7)
  1. CISPLATIN [Suspect]
     Active Substance: CISPLATIN
     Indication: Squamous cell carcinoma
     Dosage: UNK
     Route: 065
     Dates: start: 2015
  2. PACLITAXEL [Suspect]
     Active Substance: PACLITAXEL
     Indication: Metastatic squamous cell carcinoma
     Dosage: UNK, CYCLE (2 CYCLES)
     Route: 065
     Dates: start: 2016
  3. CARBOPLATIN [Suspect]
     Active Substance: CARBOPLATIN
     Indication: Metastatic squamous cell carcinoma
     Dosage: UNK, CYCLE, UNK (2 CYCLES)
     Route: 065
     Dates: start: 2016
  4. CARBOPLATIN [Suspect]
     Active Substance: CARBOPLATIN
     Dosage: UNK (PALLIATIVE CHEMOTHERAPY)
     Route: 065
     Dates: start: 201703
  5. FLUOROURACIL [Suspect]
     Active Substance: FLUOROURACIL
     Indication: Metastatic squamous cell carcinoma
     Dosage: UNK (PALLIATIVE CHEMOTHERAPY)
     Route: 065
     Dates: start: 201703
  6. PEMBROLIZUMAB [Suspect]
     Active Substance: PEMBROLIZUMAB
     Indication: Metastatic squamous cell carcinoma
     Dosage: UNK (PALLIATIVE CHEMOTHERAPY)
     Route: 065
  7. CETUXIMAB [Suspect]
     Active Substance: CETUXIMAB
     Indication: Metastatic squamous cell carcinoma
     Dosage: UNK (PALLIATIVE CHEMOTHERAPY)
     Route: 065
     Dates: start: 201703

REACTIONS (1)
  - Drug ineffective [Unknown]
